FAERS Safety Report 7043074-4 (Version None)
Quarter: 2010Q3

REPORT INFORMATION
  Report Type: 
  Country: None (occurrence: None)
  Receive Date: 20100929
  Receipt Date: 20100621
  Transmission Date: 20110219
  Serious: No
  Sender: FDA-Public Use
  Company Number: US-WYE-H16102310

PATIENT
  Age: 57 Year
  Sex: Female
  Weight: 81.27 kg

DRUGS (6)
  1. PRISTIQ [Suspect]
     Indication: DEPRESSION
     Dosage: 50 MG 1X PER 1 DAY ; 50 MG 1X PER 1 DAY ; 50 MG 1X PER 1 DAY
     Dates: start: 20011201, end: 20100609
  2. PRISTIQ [Suspect]
     Indication: THINKING ABNORMAL
     Dosage: 50 MG 1X PER 1 DAY ; 50 MG 1X PER 1 DAY ; 50 MG 1X PER 1 DAY
     Dates: start: 20011201, end: 20100609
  3. PRISTIQ [Suspect]
     Indication: DEPRESSION
     Dosage: 50 MG 1X PER 1 DAY ; 50 MG 1X PER 1 DAY ; 50 MG 1X PER 1 DAY
     Dates: start: 20100610, end: 20100616
  4. PRISTIQ [Suspect]
     Indication: THINKING ABNORMAL
     Dosage: 50 MG 1X PER 1 DAY ; 50 MG 1X PER 1 DAY ; 50 MG 1X PER 1 DAY
     Dates: start: 20100610, end: 20100616
  5. PRISTIQ [Suspect]
     Indication: DEPRESSION
     Dosage: 50 MG 1X PER 1 DAY ; 50 MG 1X PER 1 DAY ; 50 MG 1X PER 1 DAY
     Dates: start: 20100617
  6. PRISTIQ [Suspect]
     Indication: THINKING ABNORMAL
     Dosage: 50 MG 1X PER 1 DAY ; 50 MG 1X PER 1 DAY ; 50 MG 1X PER 1 DAY
     Dates: start: 20100617

REACTIONS (3)
  - CRYING [None]
  - DRUG WITHDRAWAL SYNDROME [None]
  - TINNITUS [None]
